FAERS Safety Report 4953273-0 (Version None)
Quarter: 2006Q1

REPORT INFORMATION
  Report Type: 
  Country: None (occurrence: None)
  Receive Date: 20060324
  Receipt Date: 20060317
  Transmission Date: 20060701
  Serious: Yes (Other)
  Sender: FDA-Public Use
  Company Number: SG-BRISTOL-MYERS SQUIBB COMPANY-13318571

PATIENT
  Age: 84 Year
  Sex: Male

DRUGS (4)
  1. GATIFLOXACIN [Suspect]
  2. CLOPIDOGREL BISULFATE [Concomitant]
  3. NIFEDIPINE [Concomitant]
  4. CANDESARTAN [Concomitant]

REACTIONS (1)
  - HYPOGLYCAEMIA [None]
